FAERS Safety Report 10336306 (Version 1)
Quarter: 2014Q3

REPORT INFORMATION
  Report Type: Spontaneous
  Country: US (occurrence: US)
  Receive Date: 20140723
  Receipt Date: 20140723
  Transmission Date: 20150326
  Serious: No
  Sender: FDA-Public Use
  Company Number: US-BRISTOL-MYERS SQUIBB COMPANY-20058483

PATIENT
  Age: 80 Year
  Sex: Male
  Weight: 78.46 kg

DRUGS (3)
  1. WARFARIN SODIUM. [Suspect]
     Active Substance: WARFARIN SODIUM
     Dosage: 2.5MG TWICE WEEKLY AND STOPPED?2.5 MG ONCE WEEKLY ADDED
     Dates: start: 2011
  2. ASPIRIN. [Concomitant]
     Active Substance: ASPIRIN
  3. COUMADIN [Suspect]
     Active Substance: WARFARIN SODIUM
     Indication: VASCULAR GRAFT
     Dates: start: 2005

REACTIONS (5)
  - Contusion [Unknown]
  - Eye haemorrhage [Unknown]
  - Tongue haemorrhage [Unknown]
  - International normalised ratio abnormal [Unknown]
  - Epistaxis [Unknown]
